FAERS Safety Report 6370327-5 (Version None)
Quarter: 2009Q3

REPORT INFORMATION
  Report Type: 
  Country: None (occurrence: None)
  Receive Date: 20090923
  Receipt Date: 20090916
  Transmission Date: 20100115
  Serious: Yes (Hospitalization, Other)
  Sender: FDA-Public Use
  Company Number: IT-ROXANE LABORATORIES, INC.-2009-RO-00941RO

PATIENT
  Age: 5 Year
  Sex: Male

DRUGS (19)
  1. PREDNISONE [Suspect]
     Indication: T-CELL TYPE ACUTE LEUKAEMIA
  2. PREDNISONE [Suspect]
  3. FUROSEMIDE [Suspect]
     Indication: TUMOUR LYSIS SYNDROME
  4. CALCIUM GLUCONATE [Suspect]
     Indication: TUMOUR LYSIS SYNDROME
     Route: 042
  5. CALCIUM GLUCONATE [Suspect]
     Indication: HYPOCALCAEMIA
     Route: 042
  6. CALCIUM CARBONATE [Suspect]
     Indication: TUMOUR LYSIS SYNDROME
     Dosage: 3 G
  7. CALCIUM CARBONATE [Suspect]
     Indication: HYPOCALCAEMIA
  8. METHOTREXATE [Suspect]
     Indication: T-CELL TYPE ACUTE LEUKAEMIA
  9. RASBURICASE [Suspect]
     Indication: TUMOUR LYSIS SYNDROME
  10. ALLOPURINOLE [Suspect]
     Indication: TUMOUR LYSIS SYNDROME
  11. MEROPENEM [Suspect]
     Indication: STAPHYLOCOCCAL INFECTION
     Route: 042
  12. MEROPENEM [Suspect]
     Indication: ENTEROBACTER INFECTION
  13. TEICOPLANIN [Suspect]
     Indication: STAPHYLOCOCCAL INFECTION
     Route: 042
  14. TEICOPLANIN [Suspect]
     Indication: ENTEROBACTER INFECTION
  15. AMIKACIN [Suspect]
     Indication: STAPHYLOCOCCAL INFECTION
     Route: 042
  16. AMIKACIN [Suspect]
     Indication: ENTEROBACTER INFECTION
  17. VINCRISTINE [Suspect]
     Indication: T-CELL TYPE ACUTE LEUKAEMIA
  18. SODIUM THIOSULFATE [Suspect]
     Indication: CALCINOSIS
  19. ONDANSETRON [Concomitant]
     Indication: NAUSEA

REACTIONS (7)
  - CALCINOSIS [None]
  - ENTEROBACTER INFECTION [None]
  - EXTRAVASATION [None]
  - NAUSEA [None]
  - RESPIRATORY DISTRESS [None]
  - STAPHYLOCOCCAL INFECTION [None]
  - TUMOUR LYSIS SYNDROME [None]
